FAERS Safety Report 23816216 (Version 10)
Quarter: 2025Q4

REPORT INFORMATION
  Report Type: Report from Study
  Country: US (occurrence: US)
  Receive Date: 20240503
  Receipt Date: 20251010
  Transmission Date: 20260118
  Serious: Yes (Hospitalization)
  Sender: TAKEDA
  Company Number: US-TAKEDA-2023TUS120305

PATIENT
  Age: 34 Year
  Sex: Female

DRUGS (6)
  1. HUMAN C1-ESTERASE INHIBITOR [Suspect]
     Active Substance: HUMAN C1-ESTERASE INHIBITOR
     Indication: Immune system disorder
     Dosage: 1000 INTERNATIONAL UNIT, Q72H
     Dates: start: 202311
  2. HUMAN C1-ESTERASE INHIBITOR [Suspect]
     Active Substance: HUMAN C1-ESTERASE INHIBITOR
     Dosage: 1000 INTERNATIONAL UNIT, Q72H
     Dates: start: 20231112
  3. HUMAN C1-ESTERASE INHIBITOR [Suspect]
     Active Substance: HUMAN C1-ESTERASE INHIBITOR
     Dosage: 1000 INTERNATIONAL UNIT, Q72H
  4. FIRAZYR [Suspect]
     Active Substance: ICATIBANT ACETATE
     Indication: Immune system disorder
     Dosage: 30 GRAM
  5. FIRAZYR [Suspect]
     Active Substance: ICATIBANT ACETATE
  6. EPINEPHRINE [Concomitant]
     Active Substance: EPINEPHRINE
     Dosage: UNK

REACTIONS (5)
  - Hereditary angioedema [Recovered/Resolved]
  - Inappropriate schedule of product administration [Unknown]
  - Product dose omission in error [Unknown]
  - Product dose omission issue [Unknown]
  - Weight increased [Unknown]

NARRATIVE: CASE EVENT DATE: 20231209
